FAERS Safety Report 4352377-3 (Version None)
Quarter: 2004Q2

REPORT INFORMATION
  Report Type: 
  Country: None (occurrence: None)
  Receive Date: 20040428
  Receipt Date: 20040414
  Transmission Date: 20050107
  Serious: Yes (Other)
  Sender: FDA-Public Use
  Company Number: 2003009802

PATIENT
  Age: 67 Year
  Sex: Male
  Weight: 57 kg

DRUGS (4)
  1. ZOLOFT [Suspect]
     Indication: DEPRESSION
     Dosage: 100 MG (BID), ORAL
     Route: 048
     Dates: start: 20021112
  2. LORAZEPAM [Concomitant]
  3. BUFLOMEDIL (BUFLOMEDIL) [Concomitant]
  4. PANCREATIN TRIPLE STRENGTH CAP [Concomitant]

REACTIONS (4)
  - DEPRESSION [None]
  - FOREIGN BODY TRAUMA [None]
  - LIP AND/OR ORAL CAVITY CANCER [None]
  - THROAT IRRITATION [None]
